FAERS Safety Report 4708693-6 (Version None)
Quarter: 2005Q2

REPORT INFORMATION
  Report Type: 
  Country: None (occurrence: None)
  Receive Date: 20050629
  Receipt Date: 20050503
  Transmission Date: 20051028
  Serious: No
  Sender: FDA-Public Use
  Company Number: 05P-163-0299423-00

PATIENT
  Age: 66 Year
  Sex: Female
  Weight: 80.7403 kg

DRUGS (14)
  1. HUMIRA [Suspect]
     Indication: RHEUMATOID ARTHRITIS
     Dosage: 40 MG, 1 IN 2 WK, SUBCUTANEOUS
     Route: 058
     Dates: start: 20050316, end: 20050330
  2. HUMIRA [Suspect]
     Indication: RHEUMATOID ARTHRITIS
     Dosage: 40 MG, 1 IN 2 WK, SUBCUTANEOUS
     Route: 058
     Dates: start: 20050408
  3. FENOFIBRATE [Concomitant]
  4. ZETIA [Concomitant]
  5. TOLTERODINE TARTRATE [Concomitant]
  6. METOPROLOL SUCCINATE [Concomitant]
  7. LISINOPRIL [Concomitant]
  8. OXYCOCET [Concomitant]
  9. METFORMIN HCL [Concomitant]
  10. FUROSEMIDE [Concomitant]
  11. METHOTREXATE [Concomitant]
  12. COMBIVENT [Concomitant]
  13. SALBUTAMOL [Concomitant]
  14. IPRATROPIUM BROMIDE [Concomitant]

REACTIONS (2)
  - NODULE [None]
  - RHEUMATOID ARTHRITIS [None]
